FAERS Safety Report 23890880 (Version 1)
Quarter: 2024Q2

REPORT INFORMATION
  Report Type: Spontaneous
  Country: US (occurrence: US)
  Receive Date: 20240523
  Receipt Date: 20240523
  Transmission Date: 20240716
  Serious: Yes (Other)
  Sender: FDA-Public Use
  Company Number: US-FOUNDATIONCONSUMERHC-2024-US-029228

PATIENT
  Age: 36 Year
  Sex: Female
  Weight: 61.24 kg

DRUGS (1)
  1. AFTERA [Suspect]
     Active Substance: LEVONORGESTREL
     Indication: Post coital contraception
     Dosage: 1.5MG TABLET X 1
     Route: 048
     Dates: start: 20240515, end: 20240515

REACTIONS (6)
  - Suicidal ideation [Unknown]
  - Crying [Recovered/Resolved]
  - Fatigue [Recovered/Resolved]
  - Feeling of despair [Recovered/Resolved]
  - Panic reaction [Recovered/Resolved]
  - Mania [Recovered/Resolved]

NARRATIVE: CASE EVENT DATE: 20240517
